FAERS Safety Report 9817892 (Version 1)
Quarter: 2014Q1

REPORT INFORMATION
  Report Type: Spontaneous
  Country: EC (occurrence: EC)
  Receive Date: 20140115
  Receipt Date: 20140115
  Transmission Date: 20141002
  Serious: Yes (Death, Hospitalization, Other)
  Sender: FDA-Public Use
  Company Number: PHHY2014EC003091

PATIENT
  Age: 27 Year
  Sex: Female

DRUGS (1)
  1. NILOTINIB [Suspect]
     Indication: CHRONIC MYELOID LEUKAEMIA
     Dosage: 400 MG, BID
     Route: 048
     Dates: start: 201304, end: 201311

REACTIONS (8)
  - Haemorrhage intracranial [Fatal]
  - General physical health deterioration [Unknown]
  - Blast crisis in myelogenous leukaemia [Unknown]
  - White blood cell count increased [Unknown]
  - Chronic myeloid leukaemia [Unknown]
  - Headache [Unknown]
  - Pyrexia [Unknown]
  - Malignant neoplasm progression [Unknown]
